FAERS Safety Report 10328999 (Version 2)
Quarter: 2014Q3

REPORT INFORMATION
  Report Type: Report from Study
  Country: CA (occurrence: CA)
  Receive Date: 20140721
  Receipt Date: 20140721
  Transmission Date: 20150326
  Serious: Yes (Death, Hospitalization, Other)
  Sender: FDA-Public Use
  Company Number: CA-ROCHE-1383639

PATIENT
  Age: 60 Year
  Sex: Female
  Weight: 59.9 kg

DRUGS (6)
  1. XELODA [Suspect]
     Active Substance: CAPECITABINE
     Indication: BREAST CANCER METASTATIC
     Route: 048
     Dates: start: 201206, end: 2013
  2. PERJETA [Suspect]
     Active Substance: PERTUZUMAB
     Indication: HER-2 POSITIVE BREAST CANCER
     Dosage: UNKNOWN DOSE
     Route: 042
     Dates: start: 20131015, end: 20140520
  3. SYNTHROID [Concomitant]
     Active Substance: LEVOTHYROXINE SODIUM
     Dosage: L-THROXINE DAILY
     Route: 065
  4. DOCETAXOL [Suspect]
     Active Substance: DOCETAXEL
     Indication: BREAST CANCER METASTATIC
     Route: 065
  5. HERCEPTIN [Suspect]
     Active Substance: TRASTUZUMAB
     Indication: BREAST CANCER METASTATIC
     Route: 042
     Dates: end: 2013
  6. PERJETA [Suspect]
     Active Substance: PERTUZUMAB
     Dosage: FIRST PIR RECEIVED BY PATIENT
     Route: 042
     Dates: start: 20131217, end: 20140520

REACTIONS (5)
  - Drug effect decreased [Unknown]
  - Malignant neoplasm progression [Unknown]
  - Therapeutic product ineffective [Unknown]
  - Hepatic enzyme increased [Unknown]
  - Pleural effusion [Fatal]

NARRATIVE: CASE EVENT DATE: 20140513
